FAERS Safety Report 10646483 (Version 3)
Quarter: 2015Q1

REPORT INFORMATION
  Report Type: Spontaneous
  Country: US (occurrence: US)
  Receive Date: 20141211
  Receipt Date: 20150211
  Transmission Date: 20150720
  Serious: No
  Sender: FDA-Public Use
  Company Number: US-GLAXOSMITHKLINE-A1091086A

PATIENT

DRUGS (1)
  1. IMITREX SPRAY [Suspect]
     Active Substance: SUMATRIPTAN
     Indication: MIGRAINE
     Route: 045

REACTIONS (4)
  - Pharyngeal oedema [Unknown]
  - Swollen tongue [Unknown]
  - Local swelling [Unknown]
  - Dyspnoea [Unknown]
